FAERS Safety Report 6635618-9 (Version None)
Quarter: 2010Q1

REPORT INFORMATION
  Report Type: 
  Country: None (occurrence: None)
  Receive Date: 20100312
  Receipt Date: 20100312
  Transmission Date: 20100710
  Serious: Yes (Other)
  Sender: FDA-Public Use
  Company Number: None

PATIENT
  Sex: Female

DRUGS (2)
  1. BUPROPION HCL [Suspect]
     Indication: MAJOR DEPRESSION
     Dosage: 300 MG Q AM ORAL
     Route: 048
     Dates: start: 20070507
  2. WELLBUTRIN XL [Suspect]

REACTIONS (3)
  - CHEST PAIN [None]
  - PALPITATIONS [None]
  - PRODUCT SUBSTITUTION ISSUE [None]
